FAERS Safety Report 6632443-X (Version None)
Quarter: 2010Q1

REPORT INFORMATION
  Report Type: 
  Country: None (occurrence: None)
  Receive Date: 20100312
  Receipt Date: 20091029
  Transmission Date: 20100710
  Serious: Yes (Other)
  Sender: FDA-Public Use
  Company Number: 2009BI013419

PATIENT
  Age: 40 Year
  Sex: Female
  Weight: 58 kg

DRUGS (4)
  1. AVONEX [Suspect]
     Indication: MULTIPLE SCLEROSIS
     Route: 030
     Dates: start: 20000101
  2. AVONEX [Suspect]
     Route: 030
     Dates: start: 20071019
  3. AVONEX [Suspect]
     Route: 030
  4. AVONEX [Suspect]
     Route: 030

REACTIONS (3)
  - BLOOD GLUCOSE DECREASED [None]
  - GRAND MAL CONVULSION [None]
  - STRESS [None]
